FAERS Safety Report 4344804-2 (Version None)
Quarter: 2004Q2

REPORT INFORMATION
  Report Type: 
  Country: None (occurrence: None)
  Receive Date: 20040420
  Receipt Date: 20040413
  Transmission Date: 20050107
  Serious: Yes (Hospitalization, Other)
  Sender: FDA-Public Use
  Company Number: US-JNJFOC-20031202050

PATIENT
  Age: 82 Year
  Sex: Male
  Weight: 68 kg

DRUGS (9)
  1. ABCIXIMAB - BLINDED (ABCIXIMAB) INJECTION [Suspect]
     Indication: ACUTE MYOCARDIAL INFARCTION
     Dosage: INTRAVENOUS
     Route: 042
     Dates: start: 20031201, end: 20031202
  2. RETEVASE [Suspect]
     Indication: ACUTE MYOCARDIAL INFARCTION
     Dates: start: 20031201
  3. PLACEBO (PLACEBO) [Suspect]
  4. LOPRESSOR [Concomitant]
  5. ZOCOR [Concomitant]
  6. COLACE (DOCUSATE SODIUM) [Concomitant]
  7. PROTONIX [Concomitant]
  8. NTG (GLYCERYL TRINITRATE) [Concomitant]
  9. CARAFATE [Concomitant]

REACTIONS (14)
  - ACTIVATED PARTIAL THROMBOPLASTIN TIME PROLONGED [None]
  - ACUTE MYOCARDIAL INFARCTION [None]
  - ANASTOMOTIC ULCER [None]
  - CALCINOSIS [None]
  - CAROTID ARTERY DISEASE [None]
  - CEREBRAL ATROPHY [None]
  - CEREBRAL INFARCTION [None]
  - CEREBROVASCULAR ACCIDENT [None]
  - DRUG INTERACTION [None]
  - GASTRIC ANTRAL VASCULAR ECTASIA [None]
  - GASTROINTESTINAL HAEMORRHAGE [None]
  - HAEMATEMESIS [None]
  - HAEMATOCRIT DECREASED [None]
  - HAEMOGLOBIN DECREASED [None]
